FAERS Safety Report 18913310 (Version 1)
Quarter: 2021Q1

REPORT INFORMATION
  Report Type: Spontaneous
  Country: US (occurrence: US)
  Receive Date: 20210219
  Receipt Date: 20210219
  Transmission Date: 20210420
  Serious: No
  Sender: FDA-Public Use
  Company Number: US-BIOGEN-2021BI00979018

PATIENT
  Sex: Female

DRUGS (21)
  1. MAGNESIUM CITRATE. [Concomitant]
     Active Substance: MAGNESIUM CITRATE
     Route: 065
  2. ARMODAFINIL. [Concomitant]
     Active Substance: ARMODAFINIL
     Route: 065
  3. SPIRONOLACTONE. [Concomitant]
     Active Substance: SPIRONOLACTONE
     Route: 065
  4. BUPROPION HCL [Concomitant]
     Active Substance: BUPROPION HYDROCHLORIDE
     Route: 065
  5. SEASONIQUE [Concomitant]
     Active Substance: ETHINYL ESTRADIOL\LEVONORGESTREL
     Route: 065
  6. AEP CALCIUM [Concomitant]
     Route: 065
  7. FLAX OIL [Concomitant]
     Route: 065
  8. MAGNESIUM GLUCONATE [Concomitant]
     Active Substance: MAGNESIUM GLUCONATE
     Route: 065
  9. COENZYME Q10 [Concomitant]
     Active Substance: DIETARY SUPPLEMENT\UBIDECARENONE
     Route: 065
  10. AMPYRA [Suspect]
     Active Substance: DALFAMPRIDINE
     Indication: PRODUCT USED FOR UNKNOWN INDICATION
     Route: 065
  11. PROBIOTIC [Concomitant]
     Active Substance: PROBIOTICS NOS
     Route: 065
  12. BUTTERBUR [Concomitant]
     Route: 065
  13. TUMERIC PROPRIETARY BLEND [Concomitant]
     Route: 065
  14. BIOTIN [Concomitant]
     Active Substance: BIOTIN
     Route: 065
  15. ZINC CITRATE [Concomitant]
     Active Substance: ZINC CITRATE
     Route: 065
  16. TYSABRI [Suspect]
     Active Substance: NATALIZUMAB
     Indication: MULTIPLE SCLEROSIS
     Route: 065
  17. VALACYCLOVIR [Concomitant]
     Active Substance: VALACYCLOVIR HYDROCHLORIDE
     Route: 065
  18. ESTRADIOL. [Concomitant]
     Active Substance: ESTRADIOL
     Route: 065
  19. ZONISAMIDE. [Concomitant]
     Active Substance: ZONISAMIDE
     Route: 065
  20. RIBOFLAVIN [Concomitant]
     Active Substance: RIBOFLAVIN
     Route: 065
  21. MEMANTINE HCL [Concomitant]
     Active Substance: MEMANTINE
     Route: 065

REACTIONS (1)
  - Feeling abnormal [Unknown]
